FAERS Safety Report 8789943 (Version 1)
Quarter: 2012Q4

REPORT INFORMATION
  Report Type: 
  Country: US (occurrence: US)
  Receive Date: 20120914
  Receipt Date: 20120914
  Transmission Date: 20130627
  Serious: Yes (Other)
  Sender: FDA-Public Use
  Company Number: US-ELI_LILLY_AND_COMPANY-US201209002704

PATIENT
  Sex: Male

DRUGS (3)
  1. HUMALOG LISPRO [Suspect]
     Indication: DIABETES MELLITUS
     Dosage: 4 u, each morning
     Dates: start: 2007
  2. GLUCAGON [Suspect]
     Indication: BLOOD GLUCOSE DECREASED
     Dosage: UNK, prn
  3. LANTUS [Concomitant]
     Dosage: 26 u, UNK

REACTIONS (5)
  - Blood glucose decreased [Recovered/Resolved]
  - Loss of consciousness [Recovered/Resolved]
  - Cardiac disorder [Unknown]
  - Blood glucose abnormal [Unknown]
  - Suspected counterfeit product [Unknown]
